FAERS Safety Report 4306167-8 (Version None)
Quarter: 2004Q1

REPORT INFORMATION
  Report Type: 
  Country: None (occurrence: None)
  Receive Date: 20040225
  Receipt Date: 20030213
  Transmission Date: 20041129
  Serious: No
  Sender: FDA-Public Use
  Company Number: US-BRISTOL-MYERS SQUIBB COMPANY-12212213

PATIENT
  Sex: Female

DRUGS (1)
  1. EXCEDRIN (MIGRAINE) [Suspect]
     Dosage: TAKEN ^SEVERAL TIMES^
     Route: 048

REACTIONS (1)
  - BLOOD PRESSURE INCREASED [None]
